FAERS Safety Report 6091926-4 (Version None)
Quarter: 2009Q1

REPORT INFORMATION
  Report Type: 
  Country: None (occurrence: None)
  Receive Date: 20090225
  Receipt Date: 20081008
  Transmission Date: 20090719
  Serious: No
  Sender: FDA-Public Use
  Company Number: A0750955A

PATIENT
  Age: 72 Year
  Sex: Female

DRUGS (10)
  1. VALTREX [Suspect]
     Dosage: 1G THREE TIMES PER DAY
     Route: 048
     Dates: start: 20081004
  2. COUMADIN [Concomitant]
  3. ZYRTEC [Concomitant]
  4. DETROL [Concomitant]
  5. TOPAMAX [Concomitant]
  6. MULTI-VITAMIN [Concomitant]
  7. VITAMIN B COMPLEX CAP [Concomitant]
  8. VITAMIN E [Concomitant]
  9. CALCIUM [Concomitant]
  10. TYLENOL [Concomitant]

REACTIONS (2)
  - DIARRHOEA [None]
  - HEADACHE [None]
